FAERS Safety Report 14304759 (Version 1)
Quarter: 2017Q4

REPORT INFORMATION
  Report Type: Spontaneous
  Country: JP (occurrence: JP)
  Receive Date: 20171219
  Receipt Date: 20171219
  Transmission Date: 20180321
  Serious: Yes (Life-Threatening, Other)
  Sender: FDA-Public Use
  Company Number: JP-OTSUKA-JP-2013-10589

PATIENT
  Age: 15 Year
  Sex: Female
  Weight: 36 kg

DRUGS (7)
  1. ABILIFY [Suspect]
     Active Substance: ARIPIPRAZOLE
     Indication: DEPRESSION
     Dosage: 1.5 MG, QD
     Route: 048
     Dates: start: 20120731, end: 20130304
  2. NAUZELIN [Suspect]
     Active Substance: DOMPERIDONE
     Indication: GASTROENTERITIS
     Dosage: 1 DF, TID
     Route: 048
     Dates: start: 20130301, end: 20130303
  3. ABILIFY [Suspect]
     Active Substance: ARIPIPRAZOLE
     Indication: OFF LABEL USE
  4. ABILIFY [Suspect]
     Active Substance: ARIPIPRAZOLE
     Indication: DEPRESSIVE SYMPTOM
  5. PARACETAMOL [Suspect]
     Active Substance: ACETAMINOPHEN
     Indication: GASTROENTERITIS
     Dosage: 200 MG, QD
     Route: 054
     Dates: start: 20130301, end: 20130303
  6. FLOMOX [Suspect]
     Active Substance: CEFCAPENE PIVOXIL HYDROCHLORIDE HYDRATE
     Indication: GASTROENTERITIS
     Dosage: 1 DF, TID
     Route: 048
     Dates: start: 20130301, end: 20130303
  7. ACETAMINOPHEN. [Suspect]
     Active Substance: ACETAMINOPHEN
     Indication: GASTROENTERITIS
     Dosage: 200 MG, PRN
     Route: 054
     Dates: start: 20130301, end: 20130303

REACTIONS (6)
  - Rhabdomyolysis [Recovered/Resolved]
  - Gastroenteritis [Unknown]
  - Acute kidney injury [Recovered/Resolved]
  - Type 1 diabetes mellitus [Not Recovered/Not Resolved]
  - Diabetic ketoacidotic hyperglycaemic coma [Recovered/Resolved]
  - Off label use [Unknown]

NARRATIVE: CASE EVENT DATE: 20130301
